FAERS Safety Report 17884707 (Version 1)
Quarter: 2020Q2

REPORT INFORMATION
  Report Type: Spontaneous
  Country: ES (occurrence: ES)
  Receive Date: 20200611
  Receipt Date: 20200611
  Transmission Date: 20200714
  Serious: Yes (Hospitalization)
  Sender: FDA-Public Use
  Company Number: ES-ASTRAZENECA-2020SE72501

PATIENT
  Age: 60 Year
  Sex: Male

DRUGS (4)
  1. ORFIDAL [Concomitant]
     Active Substance: LORAZEPAM
     Dates: start: 20190828
  2. DURVALUMAB (9421A) [Suspect]
     Active Substance: DURVALUMAB
     Indication: LUNG ADENOCARCINOMA STAGE III
     Dosage: 10MG/KG, 750 MG EVERY 2 WEEKS
     Route: 042
     Dates: start: 20200226, end: 20200411
  3. DEXAMETHASONE. [Suspect]
     Active Substance: DEXAMETHASONE
     Indication: PNEUMONITIS
     Dosage: DEXAMETHASONE 4 MG 1 TABLET BREAKFAST, LUNCH AND DINNER FOR 4 DAYS, SUBSEQUENTLY 1 TABLET BREAKFA...
     Route: 048
     Dates: start: 20200408, end: 20200428
  4. AMOXICILLIN /CLAVULANIC ACID [Suspect]
     Active Substance: AMOXICILLIN\CLAVULANIC ACID
     Dosage: 875 MG/125 MG, 1 DF EVERY 8 HOURS
     Route: 048
     Dates: start: 20200405, end: 20200414

REACTIONS (1)
  - Pancreatitis acute [Recovering/Resolving]

NARRATIVE: CASE EVENT DATE: 20200521
